FAERS Safety Report 25983529 (Version 1)
Quarter: 2025Q4

REPORT INFORMATION
  Report Type: Spontaneous
  Country: IL (occurrence: IL)
  Receive Date: 20251031
  Receipt Date: 20251031
  Transmission Date: 20260119
  Serious: No
  Sender: ASTELLAS
  Company Number: IL-ASTELLAS-2025-AER-058222

PATIENT
  Age: 50 Year
  Sex: Female

DRUGS (2)
  1. VEOZAH [Suspect]
     Active Substance: FEZOLINETANT
     Indication: Menopausal symptoms
     Dosage: ONE 45 MG TABLET ONCE DAILY
     Route: 065
     Dates: start: 202510, end: 202510
  2. TAMOXIFEN [Concomitant]
     Active Substance: TAMOXIFEN
     Indication: Breast cancer
     Route: 065

REACTIONS (6)
  - Hepatic function abnormal [Unknown]
  - Coagulopathy [Unknown]
  - Blood urine present [Recovered/Resolved]
  - Fatigue [Unknown]
  - Intentional product use issue [Unknown]
  - Off label use [Unknown]

NARRATIVE: CASE EVENT DATE: 20251001
